FAERS Safety Report 6589165-3 (Version None)
Quarter: 2010Q1

REPORT INFORMATION
  Report Type: 
  Country: None (occurrence: None)
  Receive Date: 20100218
  Receipt Date: 20100209
  Transmission Date: 20100710
  Serious: Yes (Hospitalization)
  Sender: FDA-Public Use
  Company Number: US-ASTRAZENECA-2010SE05726

PATIENT
  Age: 61 Year
  Sex: Female

DRUGS (5)
  1. SYMBICORT [Suspect]
     Indication: ASTHMA
     Route: 055
     Dates: start: 20090101, end: 20090101
  2. VENTOLIN [Concomitant]
  3. SYNTHROID [Concomitant]
  4. ZANTAC [Concomitant]
  5. MAALOX [Concomitant]

REACTIONS (1)
  - DYSPNOEA [None]
